FAERS Safety Report 4530902-7 (Version None)
Quarter: 2004Q4

REPORT INFORMATION
  Report Type: 
  Country: None (occurrence: None)
  Receive Date: 20041206
  Receipt Date: 20040907
  Transmission Date: 20050328
  Serious: No
  Sender: FDA-Public Use
  Company Number: USA040977529

PATIENT
  Age: 60 Year
  Sex: Female

DRUGS (9)
  1. CYMBALTA [Suspect]
     Dosage: 30 MG/1 DAY
  2. ATIVAN [Concomitant]
  3. PROPRANOLOL HYDROCHLORIDE [Concomitant]
  4. KLONOPIN [Concomitant]
  5. CELEBREX [Concomitant]
  6. NEURONTIN [Concomitant]
  7. LEXAPRO [Concomitant]
  8. PREMARIN [Concomitant]
  9. SINEMET [Concomitant]

REACTIONS (1)
  - ESSENTIAL TREMOR [None]
